FAERS Safety Report 16187515 (Version 2)
Quarter: 2019Q2

REPORT INFORMATION
  Report Type: Spontaneous
  Country: TR (occurrence: TR)
  Receive Date: 20190412
  Receipt Date: 20190512
  Transmission Date: 20190711
  Serious: Yes (Hospitalization)
  Sender: FDA-Public Use
  Company Number: TR-ABBVIE-19K-161-2740320-00

PATIENT
  Age: 51 Year
  Sex: Female
  Weight: 69 kg

DRUGS (5)
  1. HUMIRA [Suspect]
     Active Substance: ADALIMUMAB
     Indication: ANKYLOSING SPONDYLITIS
     Route: 058
     Dates: start: 201712, end: 20190109
  2. HUMIRA [Suspect]
     Active Substance: ADALIMUMAB
     Indication: ANKYLOSING SPONDYLITIS
     Route: 058
     Dates: start: 20190109
  3. LUSTRAL [Concomitant]
     Active Substance: SERTRALINE HYDROCHLORIDE
     Indication: ANXIETY
     Route: 048
  4. HUMIRA [Suspect]
     Active Substance: ADALIMUMAB
     Route: 058
  5. DELIX PLUS [Concomitant]
     Active Substance: HYDROCHLOROTHIAZIDE\RAMIPRIL
     Indication: HYPERTENSION
     Route: 048
     Dates: start: 2011

REACTIONS (3)
  - Pain [Not Recovered/Not Resolved]
  - Drug ineffective [Not Recovered/Not Resolved]
  - Iron deficiency [Not Recovered/Not Resolved]

NARRATIVE: CASE EVENT DATE: 201901
